FAERS Safety Report 6825497-9 (Version None)
Quarter: 2010Q3

REPORT INFORMATION
  Report Type: 
  Country: None (occurrence: None)
  Receive Date: 20100708
  Receipt Date: 20080911
  Transmission Date: 20110219
  Serious: Yes (Other)
  Sender: FDA-Public Use
  Company Number: US-PFIZER INC-2006127524

PATIENT
  Sex: Female
  Weight: 63.5 kg

DRUGS (5)
  1. CHANTIX [Suspect]
     Indication: SMOKING CESSATION THERAPY
     Route: 048
     Dates: start: 20060101
  2. CLARINEX [Concomitant]
  3. OTHER HYPNOTICS AND SEDATIVES [Concomitant]
     Dates: end: 20060101
  4. VITAMINS [Concomitant]
     Dates: end: 20060101
  5. OTHER RESPIRATORY SYSTEM PRODUCTS [Concomitant]
     Indication: ASTHMA

REACTIONS (10)
  - ADVERSE EVENT [None]
  - ASTHMA [None]
  - DISTURBANCE IN ATTENTION [None]
  - FLATULENCE [None]
  - MENTAL STATUS CHANGES [None]
  - MOOD SWINGS [None]
  - MUSCLE SPASMS [None]
  - NAUSEA [None]
  - TOBACCO WITHDRAWAL SYMPTOMS [None]
  - WRONG TECHNIQUE IN DRUG USAGE PROCESS [None]
